FAERS Safety Report 5165764-0 (Version None)
Quarter: 2006Q4

REPORT INFORMATION
  Report Type: 
  Country: None (occurrence: None)
  Receive Date: 20061128
  Receipt Date: 20061116
  Transmission Date: 20070319
  Serious: Yes (Hospitalization)
  Sender: FDA-Public Use
  Company Number: GXKR2006TR07412

PATIENT
  Age: 23 Year
  Sex: Female

DRUGS (4)
  1. CLARITHROMYCIN [Suspect]
     Indication: RESPIRATORY TRACT INFECTION
     Dosage: 500 MG, BID, UNK
  2. COLCHICINE (COLCHICINE) [Suspect]
     Indication: ANTIINFLAMMATORY THERAPY
     Dosage: 0.5 MG, BID, UNK
  3. ERYTHROPOIETIN (ERYTHROPOIETIN) [Concomitant]
  4. CALCIUM CARBONATE (CALCIUM CARBONATE) [Concomitant]

REACTIONS (14)
  - ABDOMINAL PAIN [None]
  - ALANINE AMINOTRANSFERASE INCREASED [None]
  - ASPARTATE AMINOTRANSFERASE INCREASED [None]
  - ASTHENIA [None]
  - BONE MARROW FAILURE [None]
  - DIARRHOEA [None]
  - DRUG INTERACTION [None]
  - DRUG TOXICITY [None]
  - EPISTAXIS [None]
  - EXTRAPYRAMIDAL DISORDER [None]
  - NAUSEA [None]
  - PANCYTOPENIA [None]
  - PYREXIA [None]
  - VOMITING [None]
